FAERS Safety Report 5720916-3 (Version None)
Quarter: 2008Q2

REPORT INFORMATION
  Report Type: 
  Country: None (occurrence: None)
  Receive Date: 20080429
  Receipt Date: 20080421
  Transmission Date: 20081010
  Serious: Yes (Hospitalization)
  Sender: FDA-Public Use
  Company Number: US-AVENTIS-200811282US

PATIENT
  Sex: Female
  Weight: 68.04 kg

DRUGS (9)
  1. LOVENOX [Suspect]
     Dates: start: 20080219, end: 20080229
  2. COZAAR [Concomitant]
     Dates: start: 20080219, end: 20080303
  3. INDERAL                            /00030001/ [Concomitant]
     Dates: start: 20061001
  4. LANTUS [Concomitant]
     Dosage: DOSE: UNK
  5. HUMALOG [Concomitant]
     Dosage: DOSE: UNK
  6. MS CONTIN [Concomitant]
     Dosage: DOSE: 1EVERY 6 HR
     Dates: start: 20080219, end: 20080303
  7. PERCOCET [Concomitant]
     Indication: PAIN
     Dosage: DOSE: 4 TIMES A DAY
     Dates: start: 20080219, end: 20080228
  8. ULTRAM [Concomitant]
     Indication: PAIN
     Dosage: DOSE: 2 TIMES A DAY
     Dates: start: 20080219, end: 20080303
  9. TYLENOL EXTRA-STRENGTH [Concomitant]
     Indication: PAIN
     Dates: start: 20061001

REACTIONS (8)
  - ABDOMINAL PAIN UPPER [None]
  - CONFUSIONAL STATE [None]
  - DEHYDRATION [None]
  - DIARRHOEA [None]
  - HAEMORRHAGE [None]
  - NAUSEA [None]
  - SPEECH DISORDER [None]
  - WEIGHT DECREASED [None]
